FAERS Safety Report 10240810 (Version 1)
Quarter: 2014Q1

REPORT INFORMATION
  Report Type: Spontaneous
  Country: US (occurrence: None)
  Receive Date: 20140306
  Receipt Date: 20140306
  Transmission Date: 20141002
  Serious: Yes (Hospitalization)
  Sender: FDA-Public Use
  Company Number: 163-21880-13061237

PATIENT
  Age: 73 Year
  Sex: Female

DRUGS (10)
  1. REVLIMID (LENALIDOMIDE) (15 MILLIGRAM, CAPSULES) [Suspect]
     Indication: PLASMA CELL MYELOMA
     Route: 048
     Dates: start: 201305
  2. LISINOPRIL (LISINOPRIL) (UNKNOWN) [Concomitant]
  3. DEXAMETHASONE (DEXAMETHASONE) (TABLETS) [Concomitant]
  4. ZOMETA (ZOLEDRONIC ACID) (INJECTION) [Concomitant]
  5. ASPIRIN (ACETYLSALICYLIC ACID) (CHEWABLE TABLET) [Concomitant]
  6. COENZYME Q10 (UBIDECARENONE) [Concomitant]
  7. CRANBERRY (VACCINIUM MACROCARPON JUICE) [Concomitant]
  8. CALCIUM + VITAMIIN D (LEKOVIT CA) (TABLETS) [Concomitant]
  9. METAMUCIL CLEAR + NATURAL (INULIN) (POWDER) [Concomitant]
  10. EQL OMEGA 3 FISH OIL (FISH OILL) [Concomitant]

REACTIONS (2)
  - Full blood count decreased [None]
  - Hypotension [None]
